FAERS Safety Report 7893435-6 (Version None)
Quarter: 2011Q4

REPORT INFORMATION
  Report Type: 
  Country: None (occurrence: None)
  Receive Date: 20111104
  Receipt Date: 20111102
  Transmission Date: 20120403
  Serious: Yes (Death, Hospitalization)
  Sender: FDA-Public Use
  Company Number: NO-B.I. PHARMACEUTICALS,INC./RIDGEFIELD-2011-SW-00380NO

PATIENT
  Sex: Female

DRUGS (6)
  1. PRADAXA [Suspect]
     Indication: ATRIAL FIBRILLATION
     Dosage: 220 MG
     Dates: start: 20110725, end: 20110903
  2. DIGITOXIN TAB [Concomitant]
     Indication: CARDIAC FAILURE
     Dosage: 0.005X1
  3. SIMVASTATIN [Concomitant]
     Indication: CARDIOVASCULAR EVENT PROPHYLAXIS
     Dosage: 40 MG
     Route: 048
  4. BUMETANIDE [Concomitant]
     Indication: RENAL IMPAIRMENT
     Dosage: 2 MG
     Route: 048
  5. METOPROLOL TARTRATE [Concomitant]
     Indication: PROPHYLAXIS
     Dosage: 200 MG
     Route: 048
  6. ASPIRIN [Concomitant]
     Indication: ATRIAL FIBRILLATION

REACTIONS (1)
  - CEREBRAL HAEMORRHAGE [None]
